FAERS Safety Report 4457649-X (Version None)
Quarter: 2004Q3

REPORT INFORMATION
  Report Type: 
  Country: None (occurrence: None)
  Receive Date: 20040922
  Receipt Date: 20040913
  Transmission Date: 20050211
  Serious: Yes (Death, Hospitalization)
  Sender: FDA-Public Use
  Company Number: STA-AE-04-MTX-406

PATIENT
  Age: 80 Year
  Sex: Female

DRUGS (6)
  1. RHEUMATREX [Suspect]
     Indication: RHEUMATOID ARTHRITIS
     Dosage: 6 MG WX PER 1 WK, ORAL
     Route: 048
     Dates: start: 20011221, end: 20020709
  2. RHEUMATREX [Suspect]
     Indication: RHEUMATOID ARTHRITIS
     Dosage: 8 MG 1X PER 1 WK, ORAL
     Route: 048
     Dates: start: 20020710, end: 20031210
  3. PREDONINE-1 (PREDNISOLONE ACETATE) [Suspect]
     Indication: RHEUMATOID ARTHRITIS
     Dosage: 5 MG 1X PER 1 DAY, ORAL
     Route: 048
     Dates: start: 20020507, end: 20031210
  4. REMICADE [Suspect]
     Indication: RHEUMATOID ARTHRITIS
     Dosage: 3 MG/DAY (DR) INJ
     Dates: start: 20030918, end: 20030918
  5. REMICADE [Suspect]
     Indication: RHEUMATOID ARTHRITIS
     Dosage: 3 MG/DAY (DR) INJ
     Dates: start: 20031001, end: 20031001
  6. REMICADE [Suspect]
     Indication: RHEUMATOID ARTHRITIS
     Dosage: 3 MG/DAY (DR) INJ
     Dates: start: 20031029, end: 20031029

REACTIONS (7)
  - BETA HAEMOLYTIC STREPTOCOCCAL INFECTION [None]
  - DEPRESSED LEVEL OF CONSCIOUSNESS [None]
  - MYDRIASIS [None]
  - SEPSIS [None]
  - STOOLS WATERY [None]
  - URINARY TRACT INFECTION [None]
  - VOMITING [None]
